FAERS Safety Report 9374842 (Version 1)
Quarter: 2013Q2

REPORT INFORMATION
  Report Type: Spontaneous
  Country: US (occurrence: US)
  Receive Date: 20130628
  Receipt Date: 20130628
  Transmission Date: 20140414
  Serious: No
  Sender: FDA-Public Use
  Company Number: US-GLAXOSMITHKLINE-A0994960A

PATIENT
  Age: 63 Year
  Sex: Male

DRUGS (6)
  1. ZYBAN [Suspect]
     Indication: EX-TOBACCO USER
     Dosage: 150MG TWICE PER DAY
     Route: 048
     Dates: start: 20120822
  2. ADVAIR [Concomitant]
  3. PROVENTIL [Concomitant]
  4. ATROVENT [Concomitant]
  5. PROTONIX [Concomitant]
  6. ASPIRIN [Concomitant]

REACTIONS (9)
  - Increased appetite [Not Recovered/Not Resolved]
  - Lethargy [Unknown]
  - Flatulence [Unknown]
  - Diarrhoea [Unknown]
  - Poor quality sleep [Unknown]
  - Initial insomnia [Unknown]
  - Abdominal pain upper [Unknown]
  - Muscle spasms [Unknown]
  - Frequent bowel movements [Unknown]
